FAERS Safety Report 6474994-7 (Version None)
Quarter: 2009Q4

REPORT INFORMATION
  Report Type: 
  Country: None (occurrence: None)
  Receive Date: 20091204
  Receipt Date: 20090428
  Transmission Date: 20100525
  Serious: Yes (Hospitalization, Other)
  Sender: FDA-Public Use
  Company Number: CA-ELI_LILLY_AND_COMPANY-CA200902007909

PATIENT
  Age: 75 Year
  Sex: Female

DRUGS (7)
  1. FORTEO [Suspect]
     Indication: OSTEOPOROSIS
     Dosage: 20 UG, DAILY (1/D)
     Route: 058
     Dates: start: 20081118, end: 20090203
  2. FORTEO [Suspect]
     Dosage: 20 UG, QOD
     Route: 058
     Dates: start: 20090204
  3. CLONAZEPAM [Concomitant]
  4. ZOPICLONE [Concomitant]
  5. CALCIUM [Concomitant]
  6. VITAMIN D [Concomitant]
  7. IBUPROFEN [Concomitant]
     Dosage: UNK, AS NEEDED

REACTIONS (1)
  - FRACTURE DELAYED UNION [None]
